FAERS Safety Report 8517418 (Version 2)
Quarter: 2012Q4

REPORT INFORMATION
  Report Type: 
  Country: US (occurrence: US)
  Receive Date: 20120417
  Receipt Date: 20120906
  Transmission Date: 20130627
  Serious: Yes (Hospitalization)
  Sender: FDA-Public Use
  Company Number: US-ELI_LILLY_AND_COMPANY-US201103007154

PATIENT
  Sex: Female

DRUGS (14)
  1. FORTEO [Suspect]
     Indication: OSTEOPOROSIS
     Dosage: 20 ug, qd
     Route: 058
  2. FORTEO [Suspect]
     Dosage: 20 ug, qd
     Route: 058
  3. FORTEO [Suspect]
     Dosage: 20 ug, qd
     Route: 058
  4. VICODIN [Concomitant]
  5. CALCIUM [Concomitant]
  6. FOSAMAX [Concomitant]
  7. TOPROL [Concomitant]
     Indication: CARDIAC DISORDER
  8. PREDNISONE [Concomitant]
  9. SYNTHROID [Concomitant]
  10. PRILOSEC [Concomitant]
  11. TETRACYCLINE [Concomitant]
  12. TRAZODONE [Concomitant]
  13. VITAMIN D NOS [Concomitant]
     Dosage: 3000 UNK, UNK
  14. FENTANYL [Concomitant]

REACTIONS (8)
  - Arrhythmia [Recovering/Resolving]
  - Arrhythmia [Recovering/Resolving]
  - Injection site erythema [Unknown]
  - Back pain [Unknown]
  - Pruritus [Unknown]
  - Pain [Unknown]
  - Fatigue [Not Recovered/Not Resolved]
  - Asthenia [Not Recovered/Not Resolved]
